FAERS Safety Report 6834926-6 (Version None)
Quarter: 2010Q3

REPORT INFORMATION
  Report Type: 
  Country: None (occurrence: None)
  Receive Date: 20100712
  Receipt Date: 20070414
  Transmission Date: 20110219
  Serious: Yes (Other)
  Sender: FDA-Public Use
  Company Number: US-PFIZER INC-2007030904

PATIENT
  Sex: Female
  Weight: 66.818 kg

DRUGS (8)
  1. CHANTIX [Suspect]
     Indication: SMOKING CESSATION THERAPY
     Dates: start: 20070411
  2. XANAX [Concomitant]
  3. ZOCOR [Concomitant]
  4. CALCIUM [Concomitant]
  5. VITAMIN D [Concomitant]
  6. VITAMIN B COMPLEX CAP [Concomitant]
  7. VITAMIN C [Concomitant]
  8. HYDROCHLOROTHIAZIDE [Concomitant]

REACTIONS (8)
  - COUGH [None]
  - DYSGEUSIA [None]
  - FATIGUE [None]
  - HYPERTENSION [None]
  - ILL-DEFINED DISORDER [None]
  - MOTOR DYSFUNCTION [None]
  - MUSCLE SPASMS [None]
  - MYALGIA [None]
